FAERS Safety Report 12127960 (Version 1)
Quarter: 2016Q1

REPORT INFORMATION
  Report Type: Spontaneous
  Country: US (occurrence: US)
  Receive Date: 20160229
  Receipt Date: 20160229
  Transmission Date: 20160526
  Serious: Yes (Other)
  Sender: FDA-Public Use
  Company Number: US-TEVA-638357USA

PATIENT
  Sex: Female

DRUGS (2)
  1. COPAXONE [Suspect]
     Active Substance: GLATIRAMER ACETATE
     Indication: PRODUCT USED FOR UNKNOWN INDICATION
     Dosage: UNKNOWN FORM STRENGTH
  2. XELJANZ [Suspect]
     Active Substance: TOFACITINIB CITRATE
     Indication: PRODUCT USED FOR UNKNOWN INDICATION
     Dosage: 10 MILLIGRAM DAILY;
     Dates: start: 201512

REACTIONS (10)
  - Splenic injury [Unknown]
  - Asthenia [Unknown]
  - Injection site swelling [Unknown]
  - Rib fracture [Unknown]
  - Dyspnoea [Recovered/Resolved]
  - Depression [Unknown]
  - Infusion site warmth [Unknown]
  - Muscular weakness [Unknown]
  - Fall [Unknown]
  - Pain [Recovered/Resolved]
